FAERS Safety Report 14477236 (Version 1)
Quarter: 2018Q1

REPORT INFORMATION
  Report Type: Report from Study
  Country: US (occurrence: US)
  Receive Date: 20180201
  Receipt Date: 20180201
  Transmission Date: 20180509
  Serious: No
  Sender: FDA-Public Use
  Company Number: US-EXELIXIS-CABO-17010784

PATIENT
  Sex: Female

DRUGS (6)
  1. LOPERAMIDE [Concomitant]
     Active Substance: LOPERAMIDE
  2. OMEPRAZOLE. [Concomitant]
     Active Substance: OMEPRAZOLE
  3. METHADONE [Concomitant]
     Active Substance: METHADONE HYDROCHLORIDE
  4. COMETRIQ [Suspect]
     Active Substance: CABOZANTINIB S-MALATE
     Indication: THYROID CANCER
     Dosage: 140 MG, QD
     Route: 048
     Dates: start: 20170822
  5. DULOXETINE. [Concomitant]
     Active Substance: DULOXETINE
  6. MORPHINE [Concomitant]
     Active Substance: MORPHINE

REACTIONS (5)
  - Alopecia [Unknown]
  - Nausea [Not Recovered/Not Resolved]
  - Pain [Unknown]
  - Dry skin [Unknown]
  - Stomatitis [Unknown]
